FAERS Safety Report 4549867-7 (Version None)
Quarter: 2004Q4

REPORT INFORMATION
  Report Type: 
  Country: None (occurrence: None)
  Receive Date: 20041227
  Receipt Date: 20041004
  Transmission Date: 20050328
  Serious: No
  Sender: FDA-Public Use
  Company Number: 04P-163-0276018-00

PATIENT
  Age: 81 Year
  Sex: Female
  Weight: 51.2565 kg

DRUGS (8)
  1. HUMIRA [Suspect]
     Indication: RHEUMATOID ARTHRITIS
     Dosage: 40 MG, 1 IN 2 WK, SUBCUTANEOUS
     Route: 058
     Dates: start: 20040530
  2. METHOTREXATE SODIUM [Concomitant]
  3. LOSARTAN POTASSIUM [Concomitant]
  4. HYDROCHLOROTHIAZIDE [Concomitant]
  5. FOLIC ACID [Concomitant]
  6. ALENDRONATE SODIUM [Concomitant]
  7. COSOPT [Concomitant]
  8. ACETYLSALICYLIC ACID SRT [Concomitant]

REACTIONS (1)
  - SINUSITIS [None]
